FAERS Safety Report 6454469-1 (Version None)
Quarter: 2009Q4

REPORT INFORMATION
  Report Type: 
  Country: None (occurrence: None)
  Receive Date: 20091118
  Receipt Date: 20091116
  Transmission Date: 20100525
  Serious: Yes (Hospitalization, Other)
  Sender: FDA-Public Use
  Company Number: TPA2009A03051

PATIENT
  Age: 71 Year
  Sex: Female
  Weight: 43.5453 kg

DRUGS (20)
  1. ACTOPLUS MET [Suspect]
     Indication: TYPE 2 DIABETES MELLITUS
     Dosage: 15MG/500MG, BID, PER ORAL; 15MG/850MG, PER ORAL
     Route: 048
     Dates: end: 20090912
  2. ACTOPLUS MET [Suspect]
     Indication: TYPE 2 DIABETES MELLITUS
     Dosage: 15MG/500MG, BID, PER ORAL; 15MG/850MG, PER ORAL
     Route: 048
     Dates: start: 20070101
  3. ALENDRONATE SODIUM [Concomitant]
  4. JANUVIA (ALL OTHER THERAPEUTIC PRODUCTS) (TABLETS) [Concomitant]
  5. LASIX [Concomitant]
  6. ESTRACE [Concomitant]
  7. GLYBURIDE [Concomitant]
  8. METFORMIN HCI (METFORMIN HYDROCHLORIDE) (TABLETS) [Concomitant]
  9. MAGNESIUM OXIDE (MAGNESIUM OXIDE) (CAPSULES) [Concomitant]
  10. ANTIVERT (MECLOZINE) (TABLETS) [Concomitant]
  11. LOVASTATIN (LOVASTATIN) (TABLETS) [Concomitant]
  12. OMEPRAZOLE [Concomitant]
  13. FLECAINIDE ACETATE (FLECAINIDE ACETATE) (TABLETS) [Concomitant]
  14. CARVEDILOL (CARVEDILOL) (TABLETS) [Concomitant]
  15. GLIMEPIRIDE (GLIMEPIRIDE) (TABLETS) [Concomitant]
  16. NIFEDICAL XL (NIFEDIPINE) (TABLETS) [Concomitant]
  17. BUMETANIDE (BUMETANIDE) (TABLETS) [Concomitant]
  18. LISINOPRIL [Concomitant]
  19. ALPRAZOLAM [Concomitant]
  20. BENICAR (OLMESARTAN MEDOXOMIL) (TABLETS) [Concomitant]

REACTIONS (6)
  - CORONARY ARTERY OCCLUSION [None]
  - FALL [None]
  - FLATULENCE [None]
  - PULMONARY OEDEMA [None]
  - SPINAL FRACTURE [None]
  - WEIGHT DECREASED [None]
